FAERS Safety Report 18733310 (Version 1)
Quarter: 2021Q1

REPORT INFORMATION
  Report Type: Spontaneous
  Country: US (occurrence: US)
  Receive Date: 20210113
  Receipt Date: 20210113
  Transmission Date: 20210419
  Serious: No
  Sender: FDA-Public Use
  Company Number: US-JNJFOC-20201251902

PATIENT
  Age: 78 Year
  Sex: Female
  Weight: 90.8 kg

DRUGS (1)
  1. MENS ROGAINE EXTRA STRENGTH [Suspect]
     Active Substance: MINOXIDIL
     Indication: ALOPECIA
     Dosage: AS MUCH AS THE DROPPER TWICE A DAY EVERY DAY, PRODUCT LAST USED ON 22?DEC?2020
     Route: 061
     Dates: start: 2020

REACTIONS (5)
  - Alopecia [Recovered/Resolved]
  - Application site exfoliation [Not Recovered/Not Resolved]
  - Product use issue [Unknown]
  - Hair colour changes [Recovered/Resolved]
  - Intentional product misuse [Unknown]

NARRATIVE: CASE EVENT DATE: 2020
